FAERS Safety Report 25075761 (Version 1)
Quarter: 2025Q1

REPORT INFORMATION
  Report Type: Spontaneous
  Country: GR (occurrence: GR)
  Receive Date: 20250313
  Receipt Date: 20250313
  Transmission Date: 20250408
  Serious: Yes (Life-Threatening)
  Sender: AMGEN
  Company Number: GR-AMGEN-GRCSP2025044337

PATIENT
  Age: 58 Year
  Sex: Female

DRUGS (5)
  1. CINACALCET HYDROCHLORIDE [Suspect]
     Active Substance: CINACALCET HYDROCHLORIDE
     Indication: Hypothyroidism
     Route: 065
  2. CINACALCET HYDROCHLORIDE [Suspect]
     Active Substance: CINACALCET HYDROCHLORIDE
     Indication: Dyslipidaemia
  3. RETACRIT [Concomitant]
     Active Substance: EPOETIN ALFA-EPBX
  4. LIPIDIL [Concomitant]
     Active Substance: FENOFIBRATE
  5. LEVOTHYROXINE [Concomitant]
     Active Substance: LEVOTHYROXINE

REACTIONS (3)
  - Metabolic acidosis [Recovering/Resolving]
  - Haemodynamic instability [Recovering/Resolving]
  - Anuria [Recovering/Resolving]
